FAERS Safety Report 12437035 (Version 1)
Quarter: 2016Q2

REPORT INFORMATION
  Report Type: Spontaneous
  Country: IN (occurrence: IN)
  Receive Date: 20160606
  Receipt Date: 20160606
  Transmission Date: 20160815
  Serious: Yes (Death)
  Sender: FDA-Public Use
  Company Number: IN-ROCHE-1769471

PATIENT
  Age: 62 Year
  Sex: Male
  Weight: 56 kg

DRUGS (1)
  1. ACTILYSE [Suspect]
     Active Substance: ALTEPLASE
     Indication: ISCHAEMIC STROKE
     Route: 042
     Dates: start: 20160526, end: 20160526

REACTIONS (4)
  - Hypotension [Fatal]
  - Dyspnoea [Fatal]
  - Muscle spasms [Fatal]
  - Back pain [Fatal]

NARRATIVE: CASE EVENT DATE: 20160526
